FAERS Safety Report 25753630 (Version 1)
Quarter: 2025Q3

REPORT INFORMATION
  Report Type: Spontaneous
  Country: US (occurrence: US)
  Receive Date: 20250903
  Receipt Date: 20250903
  Transmission Date: 20251021
  Serious: No
  Sender: PFIZER
  Company Number: US-PFIZER INC-202500173302

PATIENT
  Age: 49 Year
  Sex: Female

DRUGS (2)
  1. IBRANCE [Suspect]
     Active Substance: PALBOCICLIB
     Route: 048
  2. DULOXETINE [Concomitant]
     Active Substance: DULOXETINE

REACTIONS (2)
  - Hot flush [Not Recovered/Not Resolved]
  - Neck pain [Recovered/Resolved]
